FAERS Safety Report 8030262-3 (Version None)
Quarter: 2012Q1

REPORT INFORMATION
  Report Type: 
  Country: None (occurrence: None)
  Receive Date: 20120109
  Receipt Date: 20120102
  Transmission Date: 20120608
  Serious: Yes (Hospitalization, Other)
  Sender: FDA-Public Use
  Company Number: DE-ELI_LILLY_AND_COMPANY-DE201201000060

PATIENT
  Sex: Female

DRUGS (2)
  1. CALCIUM ACETATE [Concomitant]
  2. FORTEO [Suspect]
     Indication: OSTEOPOROSIS
     Dosage: UNK, QD
     Route: 058
     Dates: start: 20110120

REACTIONS (5)
  - GALLBLADDER OPERATION [None]
  - HYPERTRICHOSIS [None]
  - SPINAL FRACTURE [None]
  - HOSPITALISATION [None]
  - PAIN [None]
